FAERS Safety Report 6372125-5 (Version None)
Quarter: 2009Q3

REPORT INFORMATION
  Report Type: 
  Country: None (occurrence: None)
  Receive Date: 20090917
  Receipt Date: 20090901
  Transmission Date: 20100115
  Serious: Yes (Other)
  Sender: FDA-Public Use
  Company Number: B0592865A

PATIENT
  Sex: Female

DRUGS (6)
  1. ZIDOVUDINE [Suspect]
     Indication: HIV INFECTION
  2. STAVUDINE [Suspect]
     Indication: HIV INFECTION
  3. DIDANOSINE [Suspect]
     Indication: HIV INFECTION
  4. INDINIVIR SULFATE [Suspect]
     Indication: HIV INFECTION
  5. SAQUINAVIR (FORMULATION UNKNOWN) (SAQUINAVIR) [Suspect]
     Indication: HIV INFECTION
  6. NELFINAVIR MESYLATE [Suspect]
     Indication: HIV INFECTION

REACTIONS (4)
  - ADVERSE DRUG REACTION [None]
  - DRUG TOXICITY [None]
  - PATHOGEN RESISTANCE [None]
  - VIROLOGIC FAILURE [None]
